FAERS Safety Report 4551512-1 (Version None)
Quarter: 2005Q1

REPORT INFORMATION
  Report Type: 
  Country: None (occurrence: None)
  Receive Date: 20050111
  Receipt Date: 20041229
  Transmission Date: 20050727
  Serious: Yes (Hospitalization, Other)
  Sender: FDA-Public Use
  Company Number: 2004121810

PATIENT
  Sex: Male

DRUGS (1)
  1. CELEBREX [Suspect]
     Indication: OSTEOARTHRITIS
     Dosage: 200 MG

REACTIONS (4)
  - GASTRODUODENAL ULCER [None]
  - HAEMORRHAGE [None]
  - HYPERTENSION [None]
  - MALAISE [None]
